FAERS Safety Report 10498595 (Version 2)
Quarter: 2015Q2

REPORT INFORMATION
  Report Type: Spontaneous
  Country: US (occurrence: US)
  Receive Date: 20141006
  Receipt Date: 20150403
  Transmission Date: 20150821
  Serious: No
  Sender: FDA-Public Use
  Company Number: US-009507513-1410USA001839

PATIENT
  Sex: Female
  Weight: 25.85 kg

DRUGS (2)
  1. CLARITIN REDITABS [Suspect]
     Active Substance: LORATADINE
     Indication: PRURITUS
     Dosage: UNK, UNKNOWN
     Route: 048
  2. CLARITIN REDITABS [Suspect]
     Active Substance: LORATADINE
     Indication: SNEEZING

REACTIONS (4)
  - Overdose [Unknown]
  - Drug administered to patient of inappropriate age [Unknown]
  - Epistaxis [Recovered/Resolved]
  - Product use issue [Unknown]
